FAERS Safety Report 5008089-6 (Version None)
Quarter: 2006Q2

REPORT INFORMATION
  Report Type: 
  Country: None (occurrence: None)
  Receive Date: 20060517
  Receipt Date: 20060504
  Transmission Date: 20061013
  Serious: Yes (Death)
  Sender: FDA-Public Use
  Company Number: B0423480A

PATIENT
  Age: 65 Year
  Sex: Male

DRUGS (5)
  1. ALKERAN [Suspect]
     Indication: CORD BLOOD TRANSPLANT THERAPY
     Dosage: 80 MG/M2 /CYCLIC
     Dates: start: 20030801
  2. FLUDARABINE PHOSPHATE                        (FLUDARADINE PHOSPHATE) [Suspect]
     Indication: CORD BLOOD TRANSPLANT THERAPY
     Dosage: 150 MG/M2 /CYCLIC
     Dates: start: 20030801
  3. RADIOTHERAPY            (RADIOTHERAPY) [Suspect]
     Indication: CORD BLOOD TRANSPLANT THERAPY
     Dosage: 4 GRAY / CYCLIC
     Dates: start: 20030801
  4. CYCLOSPORINE [Concomitant]
  5. DIURETIC [Concomitant]

REACTIONS (12)
  - BLOOD TEST ABNORMAL [None]
  - CARDIOTOXICITY [None]
  - DRUG TOXICITY [None]
  - FEBRILE NEUTROPENIA [None]
  - GASTROINTESTINAL TOXICITY [None]
  - HEPATOTOXICITY [None]
  - MARROW HYPERPLASIA [None]
  - MUCOSAL INFLAMMATION [None]
  - MULTI-ORGAN FAILURE [None]
  - NEPHROPATHY TOXIC [None]
  - TRANSPLANT REJECTION [None]
  - VENOOCCLUSIVE LIVER DISEASE [None]
